FAERS Safety Report 5656918-5 (Version None)
Quarter: 2008Q1

REPORT INFORMATION
  Report Type: 
  Country: None (occurrence: None)
  Receive Date: 20080219
  Receipt Date: 20071026
  Transmission Date: 20080703
  Serious: No
  Sender: FDA-Public Use
  Company Number: WAES 0710USA05763

PATIENT
  Age: 67 Year
  Sex: Female
  Weight: 64.4108 kg

DRUGS (5)
  1. JANUVIA [Suspect]
     Indication: DIABETES MELLITUS
     Dosage: 100 MG/DAILY/PO
     Route: 048
     Dates: start: 20071023
  2. ACTONEL [Concomitant]
  3. GLUCOPHAGE [Concomitant]
  4. PRINIVIL [Concomitant]
  5. SYNTHROID [Concomitant]

REACTIONS (4)
  - FATIGUE [None]
  - HEADACHE [None]
  - SENSATION OF HEAVINESS [None]
  - SENSORY DISTURBANCE [None]
